FAERS Safety Report 25493578 (Version 3)
Quarter: 2025Q4

REPORT INFORMATION
  Report Type: Spontaneous
  Country: JP (occurrence: JP)
  Receive Date: 20250630
  Receipt Date: 20251114
  Transmission Date: 20260118
  Serious: Yes (Hospitalization, Other)
  Sender: RANBAXY
  Company Number: JP-SUN PHARMACEUTICAL INDUSTRIES INC-2025R1-514501

PATIENT
  Age: 82 Year
  Sex: Male

DRUGS (2)
  1. BACLOFEN [Suspect]
     Active Substance: BACLOFEN
     Indication: Hiccups
     Dosage: 5 MILLIGRAM, QD
     Route: 065
  2. CHLORPROMAZINE [Concomitant]
     Active Substance: CHLORPROMAZINE
     Indication: Hiccups
     Dosage: UNK
     Route: 065

REACTIONS (6)
  - Toxicity to various agents [Unknown]
  - Vomiting [Recovering/Resolving]
  - Depressed level of consciousness [Recovering/Resolving]
  - Dyskinesia [Recovering/Resolving]
  - Athetosis [Recovering/Resolving]
  - Renal function test abnormal [Recovering/Resolving]
